FAERS Safety Report 12243467 (Version 1)
Quarter: 2016Q2

REPORT INFORMATION
  Report Type: Spontaneous
  Country: US (occurrence: US)
  Receive Date: 20160406
  Receipt Date: 20160406
  Transmission Date: 20160815
  Serious: No
  Sender: FDA-Public Use
  Company Number: US-BAYER-2016-060062

PATIENT
  Age: 84 Year
  Sex: Female
  Weight: 77.98 kg

DRUGS (2)
  1. MIRALAX [Suspect]
     Active Substance: POLYETHYLENE GLYCOL 3350
     Indication: CONSTIPATION
     Dosage: 0.75 (3/4) DF, UNK
     Route: 048
     Dates: start: 20160327
  2. MILK OF MAGNESIA ORIGINAL [Suspect]
     Active Substance: MAGNESIUM HYDROXIDE
     Dosage: 1 DF, UNK

REACTIONS (2)
  - Underdose [None]
  - Product use issue [None]

NARRATIVE: CASE EVENT DATE: 20160327
